FAERS Safety Report 25224318 (Version 1)
Quarter: 2025Q2

REPORT INFORMATION
  Report Type: Spontaneous
  Country: US (occurrence: US)
  Receive Date: 20250422
  Receipt Date: 20250422
  Transmission Date: 20250716
  Serious: No
  Sender: HIKMA
  Company Number: US-HIKMA PHARMACEUTICALS USA INC.-US-H14001-24-08598

PATIENT
  Sex: Male
  Weight: 73.923 kg

DRUGS (3)
  1. AMOXICILLIN [Suspect]
     Active Substance: AMOXICILLIN
     Indication: Product used for unknown indication
     Route: 065
  2. LENVIMA [Suspect]
     Active Substance: LENVATINIB
     Dosage: 18 MILLIGRAM, QD
     Route: 048
  3. LENVIMA [Suspect]
     Active Substance: LENVATINIB
     Indication: Renal cancer
     Dosage: 20 MILLIGRAM, QD
     Route: 048
     Dates: start: 20240709

REACTIONS (5)
  - Rash [Recovering/Resolving]
  - Pigmentation disorder [Recovering/Resolving]
  - Oropharyngeal pain [Recovering/Resolving]
  - Drug hypersensitivity [Recovering/Resolving]
  - Blood pressure increased [Recovering/Resolving]
